FAERS Safety Report 7561553-8 (Version None)
Quarter: 2011Q2

REPORT INFORMATION
  Report Type: 
  Country: None (occurrence: None)
  Receive Date: 20110621
  Receipt Date: 20100624
  Transmission Date: 20111010
  Serious: No
  Sender: FDA-Public Use
  Company Number: US-ASTRAZENECA-2010SE29619

PATIENT
  Sex: Male
  Weight: 104.3 kg

DRUGS (2)
  1. ALBUTEROL SULFATE AUTOHALER [Concomitant]
  2. PULMICORT [Suspect]
     Indication: DYSPNOEA
     Route: 055
     Dates: start: 20100501, end: 20100501

REACTIONS (5)
  - DRUG DOSE OMISSION [None]
  - PARALYSIS [None]
  - MUSCLE SPASMS [None]
  - PAIN IN JAW [None]
  - HEADACHE [None]
